FAERS Safety Report 19280941 (Version 1)
Quarter: 2021Q2

REPORT INFORMATION
  Report Type: Spontaneous
  Country: US (occurrence: US)
  Receive Date: 20210521
  Receipt Date: 20210521
  Transmission Date: 20210717
  Serious: No
  Sender: FDA-Public Use
  Company Number: US-ASTRAZENECA-2021A350441

PATIENT
  Age: 23419 Day
  Sex: Female
  Weight: 68 kg

DRUGS (2)
  1. BREZTRI AEROSPHERE [Suspect]
     Active Substance: BUDESONIDE\FORMOTEROL\GLYCOPYRRONIUM
     Indication: DYSPNOEA
     Dosage: 2 PUFFS IN THE MORNING/2 PUFFS AT NIGHT,
     Route: 055
     Dates: start: 20210421
  2. BREZTRI AEROSPHERE [Suspect]
     Active Substance: BUDESONIDE\FORMOTEROL\GLYCOPYRRONIUM
     Indication: CHRONIC OBSTRUCTIVE PULMONARY DISEASE
     Dosage: 2 PUFFS IN THE MORNING/2 PUFFS AT NIGHT,
     Route: 055
     Dates: start: 20210421

REACTIONS (4)
  - Product label confusion [Unknown]
  - Headache [Not Recovered/Not Resolved]
  - Dysphonia [Not Recovered/Not Resolved]
  - Device use confusion [Unknown]

NARRATIVE: CASE EVENT DATE: 20210421
